FAERS Safety Report 7314602 (Version 7)
Quarter: 2013Q4

REPORT INFORMATION
  Report Type: Spontaneous
  Country: US (occurrence: US)
  Receive Date: 20100311
  Receipt Date: 20131202
  Transmission Date: 20140711
  Serious: Yes (Hospitalization)
  Sender: FDA-Public Use
  Company Number: US-BAYER-201016007NA

PATIENT
  Age: 32 Year
  Sex: Female
  Weight: 144.22 kg

DRUGS (17)
  1. YAZ [Suspect]
     Route: 048
  2. YASMIN [Suspect]
     Indication: CONTRACEPTION
     Route: 048
     Dates: start: 200512, end: 200706
  3. HYDROCHLOROTHIAZIDE [Concomitant]
     Indication: HYPERTENSION
  4. ZOLOFT [Concomitant]
     Indication: MOOD SWINGS
  5. ASPIRIN [Concomitant]
  6. IBUPROFEN [Concomitant]
  7. BENICAR [Concomitant]
  8. CLARINEX [DESLORATADINE] [Concomitant]
  9. WELLBUTRIN SR [Concomitant]
     Dosage: UNK
     Dates: end: 20070730
  10. METFORMIN [Concomitant]
  11. ALDOMET [Concomitant]
     Dosage: UNK
     Dates: end: 20070730
  12. PROGESTERONE [Concomitant]
  13. DILAUDID [Concomitant]
  14. ZOFRAN [Concomitant]
  15. ZOSYN [Concomitant]
  16. PROTONIX [Concomitant]
  17. PERCOCET [Concomitant]

REACTIONS (4)
  - Cholecystectomy [None]
  - Pancreatic injury [Unknown]
  - Cholelithiasis [None]
  - Pancreatitis [None]
